FAERS Safety Report 4895176-6 (Version None)
Quarter: 2006Q1

REPORT INFORMATION
  Report Type: 
  Country: None (occurrence: None)
  Receive Date: 20060124
  Receipt Date: 20060111
  Transmission Date: 20060701
  Serious: Yes (Hospitalization, Other)
  Sender: FDA-Public Use
  Company Number: 2006006762

PATIENT
  Age: 82 Year
  Sex: Female

DRUGS (2)
  1. LIPITOR [Suspect]
     Indication: HYPERLIPIDAEMIA
     Dosage: 20 MG (10 MG, 2 IN 1 D), ORAL
     Route: 048
  2. ASTRIX (ACETYLSALICYLIC ACID) [Concomitant]

REACTIONS (5)
  - HIP FRACTURE [None]
  - PLATELET COUNT DECREASED [None]
  - ROAD TRAFFIC ACCIDENT [None]
  - URTICARIA [None]
  - WRIST FRACTURE [None]
